FAERS Safety Report 7028102-4 (Version None)
Quarter: 2010Q3

REPORT INFORMATION
  Report Type: 
  Country: None (occurrence: None)
  Receive Date: 20100930
  Receipt Date: 20100920
  Transmission Date: 20110219
  Serious: Yes (Hospitalization)
  Sender: FDA-Public Use
  Company Number: CRC-10-162

PATIENT
  Age: 78 Year
  Sex: Female

DRUGS (2)
  1. METOPROLOL TARTRATE [Suspect]
  2. SIMVASTATIN [Suspect]
     Dosage: 20MG, ORAL
     Route: 048

REACTIONS (3)
  - BLOOD PRESSURE INADEQUATELY CONTROLLED [None]
  - DRUG INEFFECTIVE [None]
  - HYPERTENSION [None]
